FAERS Safety Report 6054405-6 (Version None)
Quarter: 2009Q1

REPORT INFORMATION
  Report Type: 
  Country: None (occurrence: None)
  Receive Date: 20090127
  Receipt Date: 20090115
  Transmission Date: 20090719
  Serious: Yes (Death, Life-Threatening)
  Sender: FDA-Public Use
  Company Number: FR-PFIZER INC-2009158855

PATIENT

DRUGS (4)
  1. XANAX [Suspect]
     Route: 048
     Dates: start: 20081116
  2. TERCIAN [Suspect]
     Route: 048
     Dates: start: 20081104, end: 20081116
  3. ZYPREXA [Suspect]
     Route: 048
     Dates: end: 20081116
  4. DEPAKOTE [Suspect]
     Route: 048
     Dates: end: 20081116

REACTIONS (1)
  - CARDIAC ARREST [None]
